FAERS Safety Report 9838341 (Version 1)
Quarter: 2014Q1

REPORT INFORMATION
  Report Type: Spontaneous
  Country: US (occurrence: US)
  Receive Date: 20140123
  Receipt Date: 20140123
  Transmission Date: 20141002
  Serious: Yes (Other)
  Sender: FDA-Public Use
  Company Number: US-GLAXOSMITHKLINE-A1054820A

PATIENT
  Age: 62 Year
  Sex: Female
  Weight: 149 kg

DRUGS (3)
  1. VOTRIENT [Suspect]
     Indication: UTERINE CANCER
     Dosage: 800MG PER DAY
     Route: 048
     Dates: start: 20121107, end: 20131216
  2. GEMCITABINE [Concomitant]
     Indication: UTERINE CANCER
  3. TAXOTERE [Concomitant]
     Indication: UTERINE CANCER

REACTIONS (9)
  - Metastases to lung [Not Recovered/Not Resolved]
  - Metastases to liver [Not Recovered/Not Resolved]
  - Perirectal abscess [Not Recovered/Not Resolved]
  - Malignant neoplasm progression [Not Recovered/Not Resolved]
  - Lymphadenopathy [Not Recovered/Not Resolved]
  - Pulmonary mass [Not Recovered/Not Resolved]
  - Hilar lymphadenopathy [Not Recovered/Not Resolved]
  - Computerised tomogram abnormal [Not Recovered/Not Resolved]
  - Hepatic lesion [Not Recovered/Not Resolved]
